FAERS Safety Report 4999652-7 (Version None)
Quarter: 2006Q2

REPORT INFORMATION
  Report Type: 
  Country: None (occurrence: None)
  Receive Date: 20060509
  Receipt Date: 20060509
  Transmission Date: 20061013
  Serious: No
  Sender: FDA-Public Use
  Company Number: None

PATIENT
  Sex: Female
  Weight: 102 kg

DRUGS (2)
  1. VISIPAQUE 320 [Suspect]
     Indication: COMPUTERISED TOMOGRAM
     Dosage: 100 ML OTO IV
     Route: 042
     Dates: start: 20060217
  2. GENTAMICIN [Concomitant]

REACTIONS (1)
  - RENAL TUBULAR NECROSIS [None]
